FAERS Safety Report 17486247 (Version 3)
Quarter: 2021Q2

REPORT INFORMATION
  Report Type: Report from Study
  Country: US (occurrence: US)
  Receive Date: 20200303
  Receipt Date: 20210604
  Transmission Date: 20210716
  Serious: Yes (Other)
  Sender: FDA-Public Use
  Company Number: US-BIOVITRUM-2020US1074

PATIENT
  Sex: Female

DRUGS (2)
  1. KINERET [Suspect]
     Active Substance: ANAKINRA
     Indication: CRYOPYRIN ASSOCIATED PERIODIC SYNDROME
     Route: 058
     Dates: start: 20190503
  2. KINERET [Suspect]
     Active Substance: ANAKINRA
     Route: 058
     Dates: start: 20190503

REACTIONS (7)
  - Cryopyrin associated periodic syndrome [Recovering/Resolving]
  - Condition aggravated [Recovering/Resolving]
  - COVID-19 [Unknown]
  - Injection site reaction [Recovered/Resolved]
  - Off label use [Not Recovered/Not Resolved]
  - Respiratory tract infection [Unknown]
  - Injection site pruritus [Recovering/Resolving]
